FAERS Safety Report 7872394-6 (Version None)
Quarter: 2011Q4

REPORT INFORMATION
  Report Type: 
  Country: None (occurrence: None)
  Receive Date: 20111030
  Receipt Date: 20110318
  Transmission Date: 20120403
  Serious: No
  Sender: FDA-Public Use
  Company Number: US-AMGEN-USASP2011015010

PATIENT
  Age: 37 Year
  Sex: Male
  Weight: 108.39 kg

DRUGS (6)
  1. CLONAZEPAM [Concomitant]
     Dosage: 0.5 MG, UNK
  2. ENBREL [Suspect]
     Indication: PRODUCT USED FOR UNKNOWN INDICATION
     Dosage: 50 MG, QWK
     Route: 058
  3. ONE A DAY MENS [Concomitant]
  4. FIBER [Concomitant]
     Dosage: 052 UNK, UNK
  5. METHOTREXATE [Concomitant]
     Dosage: 25 MG, UNK
  6. ADVAIR HFA [Concomitant]

REACTIONS (4)
  - COUGH [None]
  - HYPOAESTHESIA [None]
  - HEADACHE [None]
  - BURNING SENSATION [None]
